FAERS Safety Report 18564657 (Version 1)
Quarter: 2020Q4

REPORT INFORMATION
  Report Type: Spontaneous
  Country: CA (occurrence: CA)
  Receive Date: 20201201
  Receipt Date: 20201201
  Transmission Date: 20210114
  Serious: Yes (Other)
  Sender: FDA-Public Use
  Company Number: CA-BAYER-2020-260646

PATIENT
  Sex: Male

DRUGS (2)
  1. PEMBROLIZUMAB. [Concomitant]
     Active Substance: PEMBROLIZUMAB
     Indication: MALIGNANT MELANOMA
  2. DAROLUTAMIDE. [Suspect]
     Active Substance: DAROLUTAMIDE
     Indication: PROSTATE CANCER

REACTIONS (1)
  - Transaminases increased [None]
